FAERS Safety Report 17535702 (Version 1)
Quarter: 2020Q1

REPORT INFORMATION
  Report Type: Spontaneous
  Country: US (occurrence: US)
  Receive Date: 20200313
  Receipt Date: 20200313
  Transmission Date: 20200409
  Serious: No
  Sender: FDA-Public Use
  Company Number: US-BEH-2020114185

PATIENT
  Age: 30 Year
  Sex: Female

DRUGS (6)
  1. BERINERT [Suspect]
     Active Substance: HUMAN C1-ESTERASE INHIBITOR
     Indication: HEREDITARY ANGIOEDEMA
     Dosage: 1000 INTERNATIONAL UNIT, PRN
     Route: 065
     Dates: start: 20200204
  2. BERINERT [Suspect]
     Active Substance: HUMAN C1-ESTERASE INHIBITOR
     Indication: PROPHYLAXIS
     Dosage: 500 INTERNATIONAL UNIT (1 VIAL), QW (EVERY WEDNESDAY)
     Route: 058
  3. RANITINE [Concomitant]
     Active Substance: RANITIDINE HYDROCHLORIDE
  4. FAMOTIDINE. [Concomitant]
     Active Substance: FAMOTIDINE
  5. BERINERT [Suspect]
     Active Substance: HUMAN C1-ESTERASE INHIBITOR
     Indication: HEREDITARY ANGIOEDEMA
     Dosage: 1000 INTERNATIONAL UNIT, PRN
     Route: 065
     Dates: start: 20200204
  6. BERINERT [Suspect]
     Active Substance: HUMAN C1-ESTERASE INHIBITOR
     Indication: PROPHYLAXIS
     Dosage: 500 INTERNATIONAL UNIT (1 VIAL), QW (EVERY WEDNESDAY)
     Route: 058

REACTIONS (5)
  - Infusion site swelling [Recovered/Resolved]
  - Product use in unapproved indication [Unknown]
  - Incorrect route of product administration [Unknown]
  - No adverse event [Unknown]
  - Food allergy [Recovered/Resolved]
